FAERS Safety Report 5903028-5 (Version None)
Quarter: 2008Q3

REPORT INFORMATION
  Report Type: 
  Country: None (occurrence: None)
  Receive Date: 20080930
  Receipt Date: 20080922
  Transmission Date: 20090109
  Serious: Yes (Hospitalization)
  Sender: FDA-Public Use
  Company Number: US-AMGEN-QUU309170

PATIENT
  Sex: Female

DRUGS (1)
  1. ENBREL [Suspect]
     Indication: RHEUMATOID ARTHRITIS
     Route: 058
     Dates: start: 20041102

REACTIONS (3)
  - HAEMOGLOBIN DECREASED [None]
  - INJECTION SITE HAEMATOMA [None]
  - RHEUMATOID ARTHRITIS [None]
